FAERS Safety Report 4347284-6 (Version None)
Quarter: 2004Q1

REPORT INFORMATION
  Report Type: 
  Country: None (occurrence: None)
  Receive Date: 20040325
  Receipt Date: 20031201
  Transmission Date: 20041129
  Serious: No
  Sender: FDA-Public Use
  Company Number: USA031253647

PATIENT
  Age: 44 Year
  Sex: Female

DRUGS (12)
  1. FORTEO [Suspect]
     Indication: OSTEOPOROSIS
     Dates: start: 20030717
  2. LEVOXYL [Concomitant]
  3. MIACALCIN [Concomitant]
  4. ACTONEL [Concomitant]
  5. LIPITOR [Concomitant]
  6. LOTREL [Concomitant]
  7. CYPROHEPTADINE HCL [Concomitant]
  8. DIAZEPAM [Concomitant]
  9. NEURONTIN [Concomitant]
  10. HYDROCODONE W/APAP [Concomitant]
  11. KETOCONAZOLE [Concomitant]
  12. CYTADREN (AMINOGLUTETHIMIDE) [Concomitant]

REACTIONS (4)
  - ARTHRALGIA [None]
  - BACK PAIN [None]
  - PAIN [None]
  - PAIN IN EXTREMITY [None]
